FAERS Safety Report 9461541 (Version 1)
Quarter: 2013Q3

REPORT INFORMATION
  Report Type: Spontaneous
  Country: SA (occurrence: None)
  Receive Date: 20130813
  Receipt Date: 20130813
  Transmission Date: 20140515
  Serious: Yes (Other)
  Sender: FDA-Public Use
  Company Number: FK201303087

PATIENT
  Age: 30 Year
  Sex: Female

DRUGS (3)
  1. CHORIONIC GONADOTROPIN [Suspect]
     Indication: OVULATION INDUCTION
  2. CLOMIFENE CITRATE [Suspect]
     Indication: OVULATION INDUCTION
     Route: 048
  3. MENOTROPINS [Suspect]
     Indication: OVULATION INDUCTION

REACTIONS (4)
  - Ovarian hyperstimulation syndrome [None]
  - Multiple pregnancy [None]
  - Pleural effusion [None]
  - Abortion spontaneous [None]
